FAERS Safety Report 7550701-1 (Version None)
Quarter: 2011Q2

REPORT INFORMATION
  Report Type: 
  Country: None (occurrence: None)
  Receive Date: 20110616
  Receipt Date: 20110608
  Transmission Date: 20111010
  Serious: Yes (Hospitalization, Other)
  Sender: FDA-Public Use
  Company Number: US-ELI_LILLY_AND_COMPANY-US201001003868

PATIENT
  Sex: Male
  Weight: 106.58 kg

DRUGS (5)
  1. BYETTA [Suspect]
     Indication: DIABETES MELLITUS
     Dosage: UNK, UNKNOWN
     Route: 065
     Dates: start: 20060101, end: 20060601
  2. METFORMIN HCL [Concomitant]
     Indication: DIABETES MELLITUS
  3. NEXIUM [Concomitant]
  4. ZYRTEC [Concomitant]
  5. AVANDIA [Concomitant]
     Indication: DIABETES MELLITUS

REACTIONS (4)
  - CHOLECYSTITIS ACUTE [None]
  - PANCREATITIS CHRONIC [None]
  - PANCREATITIS ACUTE [None]
  - INTRADUCTAL PAPILLARY MUCINOUS NEOPLASM [None]
